FAERS Safety Report 11875933 (Version 1)
Quarter: 2015Q4

REPORT INFORMATION
  Report Type: Spontaneous
  Country: JP (occurrence: JP)
  Receive Date: 20151229
  Receipt Date: 20151229
  Transmission Date: 20160305
  Serious: Yes (Other)
  Sender: FDA-Public Use
  Company Number: JP-FRESENIUS KABI-FK201506871

PATIENT
  Age: 46 Year
  Sex: Male

DRUGS (4)
  1. DOXORUBICIN [Suspect]
     Active Substance: DOXORUBICIN
     Indication: HODGKIN^S DISEASE MIXED CELLULARITY STAGE UNSPECIFIED
  2. VINBLASTINE (MANUFACTURER UNKNOWN) [Suspect]
     Active Substance: VINBLASTINE
     Indication: HODGKIN^S DISEASE MIXED CELLULARITY STAGE UNSPECIFIED
     Route: 065
  3. DACARBAZINE (MANUFACTURER UNKNOWN) [Suspect]
     Active Substance: DACARBAZINE
     Indication: HODGKIN^S DISEASE MIXED CELLULARITY STAGE UNSPECIFIED
     Route: 065
  4. BLEOMYCIN [Suspect]
     Active Substance: BLEOMYCIN SULFATE
     Indication: HODGKIN^S DISEASE MIXED CELLULARITY STAGE UNSPECIFIED
     Route: 065

REACTIONS (2)
  - Oesophagitis [Recovered/Resolved]
  - Haematemesis [None]
